FAERS Safety Report 9085838 (Version 1)
Quarter: 2013Q1

REPORT INFORMATION
  Report Type: Spontaneous
  Country: ES (occurrence: ES)
  Receive Date: 20130131
  Receipt Date: 20130131
  Transmission Date: 20140127
  Serious: Yes (Hospitalization)
  Sender: FDA-Public Use
  Company Number: ES-ELI_LILLY_AND_COMPANY-ES201301007395

PATIENT
  Sex: Female

DRUGS (1)
  1. FORSTEO [Suspect]
     Dosage: UNK, UNKNOWN
     Route: 065

REACTIONS (6)
  - Renal cyst [Unknown]
  - Hepatic cyst [Unknown]
  - Kidney small [Unknown]
  - Hiatus hernia [Unknown]
  - Calcinosis [Unknown]
  - Cyst [Unknown]
